FAERS Safety Report 11115429 (Version 1)
Quarter: 2015Q2

REPORT INFORMATION
  Report Type: Spontaneous
  Country: US (occurrence: None)
  Receive Date: 20150513
  Receipt Date: 20150513
  Transmission Date: 20150821
  Serious: Yes (Hospitalization, Other)
  Sender: FDA-Public Use
  Company Number: 001919012A

PATIENT
  Age: 25 Year
  Sex: Female

DRUGS (2)
  1. PROACTIV REPAIRING TREATMENT [Suspect]
     Active Substance: BENZOYL PEROXIDE
     Indication: ACNE
     Dosage: ONCE DAILY DERMAL
     Dates: start: 2008
  2. PROACTIV RENEWING CLEANSER [Suspect]
     Active Substance: BENZOYL PEROXIDE
     Indication: ACNE
     Dosage: ONCE DAILY DERMAL
     Dates: start: 2008

REACTIONS (4)
  - Erythema [None]
  - Skin burning sensation [None]
  - Hypersensitivity [None]
  - Rash [None]

NARRATIVE: CASE EVENT DATE: 2008
